FAERS Safety Report 6324515-4 (Version None)
Quarter: 2009Q3

REPORT INFORMATION
  Report Type: 
  Country: None (occurrence: None)
  Receive Date: 20090824
  Receipt Date: 20090819
  Transmission Date: 20100115
  Serious: Yes (Other)
  Sender: FDA-Public Use
  Company Number: US-JNJFOC-20090806629

PATIENT
  Sex: Female
  Weight: 52.16 kg

DRUGS (2)
  1. TAPENTADOL HYDROCHLORIDE [Suspect]
     Route: 048
  2. TAPENTADOL HYDROCHLORIDE [Suspect]
     Indication: NEURALGIA
     Route: 048

REACTIONS (9)
  - ALOPECIA [None]
  - CHEST PAIN [None]
  - CONSTIPATION [None]
  - DECREASED APPETITE [None]
  - MOOD SWINGS [None]
  - NAUSEA [None]
  - PRURITUS [None]
  - TACHYPHRENIA [None]
  - VOMITING [None]
